FAERS Safety Report 4316862-2 (Version None)
Quarter: 2004Q1

REPORT INFORMATION
  Report Type: 
  Country: None (occurrence: None)
  Receive Date: 20040311
  Receipt Date: 20040226
  Transmission Date: 20041129
  Serious: Yes (Other)
  Sender: FDA-Public Use
  Company Number: 23181

PATIENT
  Age: 38 Year
  Sex: Male
  Weight: 77 kg

DRUGS (1)
  1. ALDARA [Suspect]
     Indication: SKIN PAPILLOMA
     Dosage: 3 IN 1 WEEK (S), TOPICAL
     Route: 061
     Dates: start: 20031001, end: 20031201

REACTIONS (1)
  - ERYTHEMA MULTIFORME [None]
